FAERS Safety Report 6269781-9 (Version None)
Quarter: 2009Q3

REPORT INFORMATION
  Report Type: 
  Country: None (occurrence: None)
  Receive Date: 20090716
  Receipt Date: 20090713
  Transmission Date: 20100115
  Serious: Yes (Hospitalization)
  Sender: FDA-Public Use
  Company Number: FR-JNJFOC-20090703575

PATIENT
  Age: 41 Year
  Sex: Female

DRUGS (2)
  1. OFLOCET [Suspect]
     Indication: CYSTITIS BACTERIAL
     Route: 048
  2. BACTRIM [Suspect]
     Indication: CYSTITIS BACTERIAL
     Dosage: 2 UNITS
     Route: 048

REACTIONS (8)
  - BLOOD LACTATE DEHYDROGENASE INCREASED [None]
  - CYTOLYTIC HEPATITIS [None]
  - HYPOTENSION [None]
  - MYALGIA [None]
  - NAUSEA [None]
  - PANCYTOPENIA [None]
  - PYREXIA [None]
  - RASH [None]
